FAERS Safety Report 19505480 (Version 1)
Quarter: 2021Q3

REPORT INFORMATION
  Report Type: Spontaneous
  Country: DE (occurrence: DE)
  Receive Date: 20210708
  Receipt Date: 20210708
  Transmission Date: 20211014
  Serious: Yes (Hospitalization)
  Sender: FDA-Public Use
  Company Number: DE-TEVA-2021-DE-1929554

PATIENT
  Age: 84 Year
  Sex: Male

DRUGS (10)
  1. TORASEMID [Suspect]
     Active Substance: TORSEMIDE
     Dosage: 10 MILLIGRAM DAILY; 1?0?0?0
     Route: 048
  2. MINOXIDIL. [Concomitant]
     Active Substance: MINOXIDIL
     Dosage: 5 MILLIGRAM DAILY; 2.5 MG, 1?0?1?0,
     Route: 048
  3. METFORMIN [Suspect]
     Active Substance: METFORMIN HYDROCHLORIDE
     Dosage: 1000 MG, 1?0?0.5?0
     Route: 048
  4. LERCANIDIPINE [Concomitant]
     Active Substance: LERCANIDIPINE
     Dosage: 2 DOSAGE FORMS DAILY; 10 MG, 2?0?0?0
     Route: 048
  5. PREGABALIN. [Suspect]
     Active Substance: PREGABALIN
     Dosage: 150 MILLIGRAM DAILY; 1?0?1?0
     Route: 048
  6. EPLERENON [Suspect]
     Active Substance: EPLERENONE
     Dosage: 25 MILLIGRAM DAILY; 0?1?0?0
     Route: 048
  7. HYDROCHLOROTHIAZID/METOPROLOL [Suspect]
     Active Substance: HYDROCHLOROTHIAZIDE\METOPROLOL
     Dosage: 1 DOSAGE FORMS DAILY; 12.5 | 95 MG, 1?0?0?0
     Route: 048
  8. DOXAZOSIN [Concomitant]
     Active Substance: DOXAZOSIN MESYLATE
     Dosage: 4 MILLIGRAM DAILY;  1?0?0?0
     Route: 048
  9. ENALAPRIL [Suspect]
     Active Substance: ENALAPRIL
     Dosage: 20 MILLIGRAM DAILY; 1?0?1?0
     Route: 048
  10. ACETYLSALICYLSAURE [Suspect]
     Active Substance: ASPIRIN
     Dosage: 100 MILLIGRAM DAILY;  0?1?0?0
     Route: 048

REACTIONS (3)
  - Hypoaesthesia [Recovering/Resolving]
  - Muscular weakness [Recovering/Resolving]
  - Paraesthesia [Recovering/Resolving]
